FAERS Safety Report 4566537-X (Version None)
Quarter: 2005Q1

REPORT INFORMATION
  Report Type: 
  Country: None (occurrence: None)
  Receive Date: 20050126
  Receipt Date: 20050126
  Transmission Date: 20050727
  Serious: Yes (Hospitalization)
  Sender: FDA-Public Use
  Company Number: None

PATIENT
  Age: 67 Year
  Sex: Female

DRUGS (2)
  1. AMOXICILLIN [Suspect]
     Indication: CHRONIC OBSTRUCTIVE PULMONARY DISEASE
     Dosage: 500 MG TID
     Dates: start: 20041123, end: 20041127
  2. AMOXICILLIN [Suspect]
     Indication: VIRAL UPPER RESPIRATORY TRACT INFECTION
     Dosage: 500 MG TID
     Dates: start: 20041123, end: 20041127

REACTIONS (3)
  - DIARRHOEA [None]
  - NAUSEA [None]
  - VOMITING [None]
